FAERS Safety Report 17848335 (Version 2)
Quarter: 2020Q3

REPORT INFORMATION
  Report Type: Report from Study
  Country: US (occurrence: US)
  Receive Date: 20200602
  Receipt Date: 20200728
  Transmission Date: 20201103
  Serious: Yes (Other)
  Sender: FDA-Public Use
  Company Number: US-UCBSA-2020021536

PATIENT
  Age: 54 Year
  Sex: Female

DRUGS (2)
  1. LACOSAMIDE. [Suspect]
     Active Substance: LACOSAMIDE
     Indication: SEIZURE
     Dosage: 200 MILLIGRAM, 2X/DAY (BID)
     Dates: start: 20200123, end: 2020
  2. LACOSAMIDE. [Suspect]
     Active Substance: LACOSAMIDE
     Indication: EPILEPSY
     Dosage: 200 MG 1 TABLET TWICE DAILY AND 100 MG 1 TABLET AT NIGHT, 2X/DAY (BID)
     Dates: start: 20200625

REACTIONS (4)
  - Coronavirus infection [Not Recovered/Not Resolved]
  - Off label use [Unknown]
  - Seizure [Not Recovered/Not Resolved]
  - Overdose [Unknown]

NARRATIVE: CASE EVENT DATE: 20200522
